FAERS Safety Report 4880930-7 (Version None)
Quarter: 2005Q4

REPORT INFORMATION
  Report Type: 
  Country: None (occurrence: None)
  Receive Date: 20051223
  Receipt Date: 20051027
  Transmission Date: 20060501
  Serious: No
  Sender: FDA-Public Use
  Company Number: 05P-163-0315456-00

PATIENT
  Age: 51 Year
  Sex: Female
  Weight: 93.2 kg

DRUGS (5)
  1. HUMIRA [Suspect]
     Indication: RHEUMATOID ARTHRITIS
     Dosage: 40 MG, 1 IN 2 WK, SUBCUTANEOUS
     Route: 058
     Dates: start: 20051027
  2. LEVOTHYROXINE SODIUM [Concomitant]
  3. ALLEGRA [Concomitant]
  4. LEFLUNOMIDE [Concomitant]
  5. DARVOCET [Concomitant]

REACTIONS (3)
  - ASTHENIA [None]
  - DIZZINESS [None]
  - DYSPNOEA [None]
